FAERS Safety Report 23517912 (Version 6)
Quarter: 2025Q1

REPORT INFORMATION
  Report Type: Report from Study
  Country: JP (occurrence: JP)
  Receive Date: 20240213
  Receipt Date: 20250122
  Transmission Date: 20250408
  Serious: Yes (Hospitalization, Other)
  Sender: BRISTOL-MYERS SQUIBB COMPANY
  Company Number: JP-ONO-2023JP016177

PATIENT
  Age: 75 Year
  Sex: Male
  Weight: 58.7 kg

DRUGS (5)
  1. OPDIVO [Suspect]
     Active Substance: NIVOLUMAB
     Indication: Squamous cell carcinoma of lung
     Route: 041
     Dates: start: 20230412, end: 20230530
  2. PACLITAXEL [Suspect]
     Active Substance: PACLITAXEL
     Indication: Squamous cell carcinoma of lung
     Dates: start: 20230412, end: 20230530
  3. PACLITAXEL [Suspect]
     Active Substance: PACLITAXEL
     Dates: start: 20230817, end: 20230928
  4. CARBOPLATIN [Concomitant]
     Active Substance: CARBOPLATIN
     Indication: Squamous cell carcinoma of lung
     Dates: start: 20230412, end: 20230530
  5. CARBOPLATIN [Concomitant]
     Active Substance: CARBOPLATIN
     Dates: start: 20230817, end: 20230928

REACTIONS (4)
  - Cardiac failure [Recovering/Resolving]
  - Myocarditis [Recovering/Resolving]
  - Neuropathy peripheral [Recovered/Resolved with Sequelae]
  - Rash [Recovering/Resolving]

NARRATIVE: CASE EVENT DATE: 20230426
